FAERS Safety Report 10366415 (Version 1)
Quarter: 2014Q3

REPORT INFORMATION
  Report Type: Spontaneous
  Country: JP (occurrence: None)
  Receive Date: 20140804
  Receipt Date: 20140804
  Transmission Date: 20150326
  Serious: Yes (Life-Threatening)
  Sender: FDA-Public Use
  Company Number: SYM-2014-23782

PATIENT
  Age: 68 Year
  Sex: Female

DRUGS (2)
  1. CHOREAZINE (TETRABENAZINE) (12.5 MILLIGRAM, TABLET) (TETRABENAZINE) [Suspect]
     Active Substance: TETRABENAZINE
     Indication: HUNTINGTON^S DISEASE
     Route: 048
     Dates: start: 20130802, end: 20131126
  2. DAIKENCHUTO (HERBAL PREPARATION) (NULL) [Concomitant]

REACTIONS (3)
  - Depressive symptom [None]
  - Diet refusal [None]
  - Listless [None]

NARRATIVE: CASE EVENT DATE: 20140410
